FAERS Safety Report 15621790 (Version 2)
Quarter: 2018Q4

REPORT INFORMATION
  Report Type: Spontaneous
  Country: US (occurrence: US)
  Receive Date: 20181115
  Receipt Date: 20181231
  Transmission Date: 20190205
  Serious: No
  Sender: FDA-Public Use
  Company Number: US-PFIZER INC-2018452099

PATIENT
  Sex: Male

DRUGS (1)
  1. NICOTROL [Suspect]
     Active Substance: NICOTINE
     Indication: SMOKING CESSATION THERAPY
     Dosage: UNK

REACTIONS (6)
  - Pre-existing condition improved [Unknown]
  - Drug ineffective [Unknown]
  - Weight increased [Unknown]
  - Skin disorder [Unknown]
  - Therapeutic response unexpected [Unknown]
  - Constipation [Unknown]
